FAERS Safety Report 5763719-6 (Version None)
Quarter: 2008Q2

REPORT INFORMATION
  Report Type: 
  Country: None (occurrence: None)
  Receive Date: 20080610
  Receipt Date: 20080529
  Transmission Date: 20081010
  Serious: Yes (Hospitalization)
  Sender: FDA-Public Use
  Company Number: JP-JNJFOC-20080505195

PATIENT
  Sex: Male
  Weight: 61 kg

DRUGS (11)
  1. REMICADE [Suspect]
     Route: 042
  2. REMICADE [Suspect]
     Indication: CROHN'S DISEASE
     Dosage: ON AN UNKNOWN DATE ABOUT 2 YEARS AGO
     Route: 042
  3. LANSOPRAZOLE [Concomitant]
     Indication: REFLUX OESOPHAGITIS
  4. PENTASA [Concomitant]
     Indication: CROHN'S DISEASE
  5. BIO-THREE [Concomitant]
     Indication: CROHN'S DISEASE
  6. LAC-B [Concomitant]
     Indication: CROHN'S DISEASE
  7. PREDNISOLONE [Concomitant]
     Indication: CROHN'S DISEASE
  8. URINORM [Concomitant]
     Indication: HYPERURICAEMIA
  9. FERROMIA [Concomitant]
     Indication: ANAEMIA
  10. MYONAL [Concomitant]
     Indication: ARTHRALGIA
  11. ISOTONIC SODIUM CHLORIDE [Concomitant]

REACTIONS (4)
  - CHEST PAIN [None]
  - DYSPNOEA [None]
  - INFUSION RELATED REACTION [None]
  - SHOCK [None]
